FAERS Safety Report 19937508 (Version 2)
Quarter: 2023Q2

REPORT INFORMATION
  Report Type: Spontaneous
  Country: US (occurrence: US)
  Receive Date: 20211011
  Receipt Date: 20230421
  Transmission Date: 20230721
  Serious: Yes (Other)
  Sender: FDA-Public Use
  Company Number: US-ORGANON-O2110USA000276

PATIENT
  Sex: Male

DRUGS (3)
  1. PROPECIA [Suspect]
     Active Substance: FINASTERIDE
     Indication: Alopecia
     Dosage: 1 MG DAILY
     Route: 048
     Dates: start: 2011, end: 2016
  2. PROPECIA [Suspect]
     Active Substance: FINASTERIDE
     Dosage: 1 MG DAILY
     Route: 048
     Dates: start: 2016
  3. FINASTERIDE [Suspect]
     Active Substance: FINASTERIDE
     Dosage: UNK
     Dates: start: 2016, end: 2016

REACTIONS (4)
  - Cerebrovascular accident [Unknown]
  - Alopecia [Recovered/Resolved]
  - Product availability issue [Unknown]
  - Counterfeit product administered [Unknown]

NARRATIVE: CASE EVENT DATE: 20160101
